FAERS Safety Report 5901359-6 (Version None)
Quarter: 2008Q3

REPORT INFORMATION
  Report Type: 
  Country: None (occurrence: None)
  Receive Date: 20080925
  Receipt Date: 20080919
  Transmission Date: 20090109
  Serious: Yes (Hospitalization)
  Sender: FDA-Public Use
  Company Number: 2008SP019327

PATIENT
  Age: 77 Year
  Sex: Male
  Weight: 60 kg

DRUGS (1)
  1. INTRON A (INTERFERON ALFA-2B RECOMBINANT) [Suspect]
     Indication: HEPATITIS C
     Dosage: 3 MIU   ;IM
     Route: 030
     Dates: start: 20071002, end: 20080910

REACTIONS (1)
  - INTERSTITIAL LUNG DISEASE [None]
